FAERS Safety Report 8480157-6 (Version None)
Quarter: 2012Q2

REPORT INFORMATION
  Report Type: 
  Country: None (occurrence: None)
  Receive Date: 20120629
  Receipt Date: 20120620
  Transmission Date: 20120825
  Serious: Yes (Hospitalization)
  Sender: FDA-Public Use
  Company Number: US-ACTELION-A-US2012-65590

PATIENT

DRUGS (4)
  1. COUMADIN [Concomitant]
  2. EPOPROSTENOL SODIUM [Suspect]
     Indication: PULMONARY ARTERIAL HYPERTENSION
     Dosage: 25 NG/KG, PER MIN
     Route: 042
     Dates: start: 20110901
  3. TRACLEER [Concomitant]
     Indication: PULMONARY ARTERIAL HYPERTENSION
     Dosage: UNK
     Route: 048
     Dates: start: 20040927
  4. SILDENAFIL [Concomitant]

REACTIONS (3)
  - LOSS OF CONSCIOUSNESS [None]
  - MENTAL STATUS CHANGES [None]
  - FALL [None]
